FAERS Safety Report 6023873-8 (Version None)
Quarter: 2008Q4

REPORT INFORMATION
  Report Type: 
  Country: None (occurrence: None)
  Receive Date: 20081230
  Receipt Date: 20081224
  Transmission Date: 20090506
  Serious: Yes (Other)
  Sender: FDA-Public Use
  Company Number: JP-PFIZER INC-2008159894

PATIENT

DRUGS (2)
  1. METHYLPREDNISOLONE ACETATE AND METHYLPREDNISOLONE AND METHYLPREDNISOLO [Suspect]
     Indication: MICROSCOPIC POLYANGIITIS
     Route: 042
  2. PREDNISOLONE AND PREDNISOLONE STEAGLATE [Suspect]
     Indication: MICROSCOPIC POLYANGIITIS

REACTIONS (2)
  - CYTOMEGALOVIRUS GASTROENTERITIS [None]
  - PSEUDOMEMBRANOUS COLITIS [None]
